FAERS Safety Report 12165139 (Version 5)
Quarter: 2018Q4

REPORT INFORMATION
  Report Type: Spontaneous
  Country: FR (occurrence: FR)
  Receive Date: 20160309
  Receipt Date: 20181106
  Transmission Date: 20190204
  Serious: Yes (Congenital Anomaly, Other)
  Sender: FDA-Public Use
  Company Number: FR-ABBVIE-16P-056-1577270-00

PATIENT
  Sex: Male

DRUGS (2)
  1. DEPAKINE [Suspect]
     Active Substance: VALPROATE SODIUM
     Indication: MATERNAL EXPOSURE TIMING UNSPECIFIED
     Route: 064
  2. LAMICTAL [Suspect]
     Active Substance: LAMOTRIGINE
     Indication: EPILEPSY
     Route: 065

REACTIONS (15)
  - Sleep disorder [Unknown]
  - Psychomotor retardation [Unknown]
  - Developmental delay [Unknown]
  - Epilepsy [Unknown]
  - Foetal exposure during pregnancy [Unknown]
  - Nervous system disorder [Not Recovered/Not Resolved]
  - Cardiac murmur [Unknown]
  - Hypermetropia [Unknown]
  - Petit mal epilepsy [Unknown]
  - Aggression [Not Recovered/Not Resolved]
  - Disturbance in social behaviour [Unknown]
  - Asthma [Unknown]
  - Learning disorder [Unknown]
  - Psychomotor hyperactivity [Unknown]
  - Congenital anomaly [Not Recovered/Not Resolved]
